FAERS Safety Report 6383730-4 (Version None)
Quarter: 2009Q3

REPORT INFORMATION
  Report Type: 
  Country: None (occurrence: None)
  Receive Date: 20090929
  Receipt Date: 20090929
  Transmission Date: 20100115
  Serious: Yes (Other)
  Sender: FDA-Public Use
  Company Number: None

PATIENT
  Age: 59 Year
  Sex: Male
  Weight: 99.7913 kg

DRUGS (1)
  1. ZOCOR [Suspect]
     Dosage: 20

REACTIONS (3)
  - ARTHRALGIA [None]
  - INSOMNIA [None]
  - MUSCULOSKELETAL PAIN [None]
